FAERS Safety Report 16744183 (Version 6)
Quarter: 2019Q3

REPORT INFORMATION
  Report Type: Report from Study
  Country: CA (occurrence: CA)
  Receive Date: 20190827
  Receipt Date: 20190930
  Transmission Date: 20191005
  Serious: Yes (Hospitalization)
  Sender: FDA-Public Use
  Company Number: PHHY2019CA198698

PATIENT
  Sex: Female

DRUGS (1)
  1. CICLOSPORIN SANDOZ [Suspect]
     Active Substance: CYCLOSPORINE
     Indication: PSORIASIS
     Dosage: 100 MG,X2WEEKS THEN 150
     Route: 048
     Dates: start: 20190722, end: 20190726

REACTIONS (4)
  - Chest pain [Unknown]
  - Dyspnoea [Unknown]
  - Panic attack [Unknown]
  - Drug intolerance [Unknown]
